FAERS Safety Report 20655390 (Version 1)
Quarter: 2022Q1

REPORT INFORMATION
  Report Type: Spontaneous
  Country: US (occurrence: US)
  Receive Date: 20220330
  Receipt Date: 20220330
  Transmission Date: 20220423
  Serious: No
  Sender: FDA-Public Use
  Company Number: None

PATIENT
  Age: 78 Year
  Sex: Female

DRUGS (1)
  1. REVLIMID [Suspect]
     Active Substance: LENALIDOMIDE
     Indication: Plasma cell myeloma
     Dosage: TAKE 1 CAPSULE(2.5MG TOTAL) BYREVLIMID 2.5 MG MOUTH DAILY FOR 21 DAYS WITH 1WEEK OFF
     Route: 065
     Dates: start: 20210226

REACTIONS (1)
  - Product dose omission issue [Recovered/Resolved]
